FAERS Safety Report 18344028 (Version 1)
Quarter: 2020Q4

REPORT INFORMATION
  Report Type: Spontaneous
  Country: CA (occurrence: CA)
  Receive Date: 20201005
  Receipt Date: 20201005
  Transmission Date: 20210114
  Serious: Yes (Hospitalization)
  Sender: FDA-Public Use
  Company Number: CA-TEVA-2020-CA-1834206

PATIENT
  Age: 61 Year
  Sex: Male
  Weight: 113 kg

DRUGS (6)
  1. ACETYLSALICYLIC ACID [Concomitant]
     Active Substance: ASPIRIN
  2. HYDROCHLOROTHIAZIDE/ OLMESARTAN MEDOXOMIL [Concomitant]
  3. CRESTOR [Concomitant]
     Active Substance: ROSUVASTATIN CALCIUM
  4. METFORMIN [Concomitant]
     Active Substance: METFORMIN HYDROCHLORIDE
  5. METHYLPHENIDATE. [Concomitant]
     Active Substance: METHYLPHENIDATE
  6. NOVAMOXIN CAP 500MG [Suspect]
     Active Substance: AMOXICILLIN
     Indication: LYMPHADENOPATHY
     Dosage: 1500 MILLIGRAM DAILY;
     Route: 048

REACTIONS (9)
  - Malaise [Unknown]
  - Pyrexia [Unknown]
  - Rash maculo-papular [Unknown]
  - Fatigue [Unknown]
  - Dyspnoea [Unknown]
  - Acute kidney injury [Unknown]
  - Lymphadenopathy [Unknown]
  - Adverse drug reaction [Unknown]
  - Arthralgia [Unknown]
